FAERS Safety Report 8295034-3 (Version None)
Quarter: 2012Q2

REPORT INFORMATION
  Report Type: 
  Country: None (occurrence: None)
  Receive Date: 20120418
  Receipt Date: 20120412
  Transmission Date: 20120825
  Serious: Yes (Death, Life-Threatening, Hospitalization, Other)
  Sender: FDA-Public Use
  Company Number: US-ELI_LILLY_AND_COMPANY-US201202000225

PATIENT
  Sex: Male
  Weight: 116 kg

DRUGS (10)
  1. HYDROCODONE [Concomitant]
     Dosage: UNK, PRN
  2. ALIMTA [Suspect]
     Dosage: 936 MG, UNK
     Route: 042
     Dates: start: 20111212
  3. FOLIC ACID [Concomitant]
     Dosage: UNK
  4. METOPROLOL TARTRATE [Concomitant]
     Dosage: 50 MG, BID
  5. LOVENOX [Concomitant]
     Dosage: 1 MG/KG, BID
  6. DEXAMETHASONE [Concomitant]
  7. VITAMIN B-12 [Concomitant]
     Dosage: 1000 UG, UNK
  8. AMIODARONE HCL [Concomitant]
     Dosage: 200 MG, BID
     Route: 048
  9. ALIMTA [Suspect]
     Indication: LUNG CARCINOMA CELL TYPE UNSPECIFIED STAGE 0
     Dosage: 500 MG/M2, OTHER
     Route: 042
     Dates: start: 20111101
  10. LASIX [Concomitant]
     Dosage: 20 MG, QD

REACTIONS (9)
  - NEOPLASM MALIGNANT [None]
  - RENAL IMPAIRMENT [None]
  - LEUKOCYTOSIS [None]
  - ATRIAL FLUTTER [None]
  - HYPOALBUMINAEMIA [None]
  - CARDIO-RESPIRATORY ARREST [None]
  - BLOOD PRESSURE DECREASED [None]
  - ANAEMIA [None]
  - MALIGNANT PLEURAL EFFUSION [None]
